FAERS Safety Report 7813223-6 (Version None)
Quarter: 2011Q4

REPORT INFORMATION
  Report Type: 
  Country: None (occurrence: None)
  Receive Date: 20111013
  Receipt Date: 20111005
  Transmission Date: 20120403
  Serious: Yes (Other)
  Sender: FDA-Public Use
  Company Number: BR-ASTRAZENECA-2011SE53133

PATIENT
  Age: 61 Year
  Sex: Male

DRUGS (2)
  1. BUFFERIN CARDIO [Suspect]
     Route: 048
  2. ATACAND HCT [Suspect]
     Indication: HYPERTENSION
     Dosage: 16/12.5 MG
     Route: 048
     Dates: start: 20010101, end: 20110901

REACTIONS (4)
  - BLOOD IRON DECREASED [None]
  - GASTRIC ULCER [None]
  - GASTRIC HAEMORRHAGE [None]
  - BLOOD URIC ACID INCREASED [None]
